FAERS Safety Report 5505091-2 (Version None)
Quarter: 2007Q4

REPORT INFORMATION
  Report Type: 
  Country: None (occurrence: None)
  Receive Date: 20071102
  Receipt Date: 20071029
  Transmission Date: 20080405
  Serious: No
  Sender: FDA-Public Use
  Company Number: US-BAXTER-2007BH008056

PATIENT
  Age: 73 Year
  Sex: Male

DRUGS (1)
  1. BUMINATE 5% [Suspect]
     Indication: BLOOD PRODUCT TRANSFUSION
     Route: 042
     Dates: start: 20070917, end: 20070917

REACTIONS (3)
  - BACTERIAL CULTURE POSITIVE [None]
  - PSEUDOMONAS INFECTION [None]
  - SEPSIS [None]
